FAERS Safety Report 8284152-1 (Version None)
Quarter: 2012Q2

REPORT INFORMATION
  Report Type: 
  Country: None (occurrence: None)
  Receive Date: 20120413
  Receipt Date: 20120329
  Transmission Date: 20120825
  Serious: Yes (Other)
  Sender: FDA-Public Use
  Company Number: BR-WATSON-2012-05564

PATIENT
  Age: 9 Year
  Sex: Female

DRUGS (1)
  1. TRELSTAR [Suspect]
     Indication: PRODUCT USED FOR UNKNOWN INDICATION
     Dosage: 3.75 MG ONCE A MONTH
     Route: 030

REACTIONS (1)
  - SYNCOPE [None]
